FAERS Safety Report 23255380 (Version 1)
Quarter: 2023Q4

REPORT INFORMATION
  Report Type: Spontaneous
  Country: US (occurrence: US)
  Receive Date: 20231203
  Receipt Date: 20231203
  Transmission Date: 20240110
  Serious: No
  Sender: FDA-Public Use
  Company Number: US-AMNEAL PHARMACEUTICALS-2023-AMRX-02031

PATIENT
  Sex: Male
  Weight: 35.7 kg

DRUGS (5)
  1. ISOTRETINOIN [Suspect]
     Active Substance: ISOTRETINOIN
     Indication: Acne
     Dosage: 1X/DAY TAKIN IN CONJUNCTION WITH 80 MG, 1X/DAY
     Route: 048
     Dates: start: 20220920, end: 20221023
  2. MYORISAN [Suspect]
     Active Substance: ISOTRETINOIN
     Indication: Acne
     Dosage: 30 MG CAPSULE, 1X/DAY TAKIN IN CONJUNCTION WITH 80 MG, 1X/DAY
     Route: 048
     Dates: start: 20221024, end: 20231128
  3. MYORISAN [Suspect]
     Active Substance: ISOTRETINOIN
     Dosage: 10 MG CAPSULE, 1X/DAY TAKIN IN CONJUNCTION WITH 80 MG, 1X/DAY
     Route: 065
     Dates: start: 20221129, end: 20231128
  4. MYORISAN [Suspect]
     Active Substance: ISOTRETINOIN
     Dosage: 40 MG ORAL CAPSULE 1X/DAY TAKIN IN CONJUNCTION WITH 80 MG, 1X/DAY
     Route: 048
     Dates: start: 20221129, end: 20231128
  5. CLARAVIS [Suspect]
     Active Substance: ISOTRETINOIN
     Indication: Acne
     Dosage: UNK
     Route: 065
     Dates: start: 20230131, end: 20230228

REACTIONS (12)
  - Eye irritation [Unknown]
  - Appetite disorder [Unknown]
  - Chapped lips [Unknown]
  - Alopecia [Unknown]
  - Lip dry [Unknown]
  - Nasal dryness [Unknown]
  - Dry eye [Unknown]
  - Nausea [Unknown]
  - Headache [Unknown]
  - Dry skin [Unknown]
  - Sunburn [Unknown]
  - Epistaxis [Unknown]
